FAERS Safety Report 18606900 (Version 1)
Quarter: 2020Q4

REPORT INFORMATION
  Report Type: Spontaneous
  Country: US (occurrence: US)
  Receive Date: 20201212
  Receipt Date: 20201212
  Transmission Date: 20210114
  Serious: No
  Sender: FDA-Public Use
  Company Number: US-SA-2020SA354260

PATIENT

DRUGS (15)
  1. BIOTIN [Concomitant]
     Active Substance: BIOTIN
  2. MELATONIN [Concomitant]
     Active Substance: MELATONIN
  3. FLUMADINE [Concomitant]
     Active Substance: RIMANTADINE HYDROCHLORIDE
  4. ALTACE [Concomitant]
     Active Substance: RAMIPRIL
  5. CALCIUM 500+D [Concomitant]
     Active Substance: CALCIUM\VITAMIN D
  6. MAGNESIUM [Concomitant]
     Active Substance: MAGNESIUM
  7. VITAMIN D3 [Concomitant]
     Active Substance: CHOLECALCIFEROL
  8. SOLIQUA 100/33 [Suspect]
     Active Substance: INSULIN GLARGINE\LIXISENATIDE
     Dosage: 100-33/ML INSULIN PEN
     Route: 065
  9. EFFEXOR XR [Concomitant]
     Active Substance: VENLAFAXINE HYDROCHLORIDE
  10. ASPIRIN 81 [Concomitant]
     Active Substance: ASPIRIN
  11. CRESTOR [Concomitant]
     Active Substance: ROSUVASTATIN CALCIUM
  12. METOPROLOL SUCCINATE. [Concomitant]
     Active Substance: METOPROLOL SUCCINATE
  13. TYMLOS [Suspect]
     Active Substance: ABALOPARATIDE
     Indication: OSTEOPOROSIS
     Dosage: 80 UG, QD
     Route: 058
  14. FUROSEMIDE. [Concomitant]
     Active Substance: FUROSEMIDE
  15. ZINC. [Concomitant]
     Active Substance: ZINC

REACTIONS (1)
  - Diarrhoea [Not Recovered/Not Resolved]
